FAERS Safety Report 14319890 (Version 2)
Quarter: 2018Q1

REPORT INFORMATION
  Report Type: Spontaneous
  Country: FR (occurrence: FR)
  Receive Date: 20171222
  Receipt Date: 20180112
  Transmission Date: 20180509
  Serious: Yes (Death, Congenital Anomaly, Other)
  Sender: FDA-Public Use
  Company Number: PHHY2017FR191441

PATIENT

DRUGS (1)
  1. PREDNISONE. [Suspect]
     Active Substance: PREDNISONE
     Indication: ANTINUCLEAR ANTIBODY POSITIVE
     Dosage: MATERNAL DOSE: 0.3 MG/KG, QD
     Route: 064

REACTIONS (2)
  - Congenital cytomegalovirus infection [Fatal]
  - Foetal exposure during pregnancy [Fatal]
